FAERS Safety Report 6068424-7 (Version None)
Quarter: 2009Q1

REPORT INFORMATION
  Report Type: 
  Country: None (occurrence: None)
  Receive Date: 20090203
  Receipt Date: 20090121
  Transmission Date: 20090719
  Serious: Yes (Other)
  Sender: FDA-Public Use
  Company Number: 2009MB000007

PATIENT
  Sex: Female

DRUGS (1)
  1. CEPHALEXIN             (CEPHALEXIN CAPSULES) [Suspect]
     Indication: DRUG USE FOR UNKNOWN INDICATION

REACTIONS (2)
  - CONGENITAL CHOROID PLEXUS CYST [None]
  - MATERNAL DRUGS AFFECTING FOETUS [None]
